FAERS Safety Report 17745695 (Version 1)
Quarter: 2020Q2

REPORT INFORMATION
  Report Type: Spontaneous
  Country: US (occurrence: US)
  Receive Date: 20200505
  Receipt Date: 20200505
  Transmission Date: 20200714
  Serious: No
  Sender: FDA-Public Use
  Company Number: US-EMD SERONO-233813K09USA

PATIENT
  Age: 27 Year
  Sex: Female

DRUGS (3)
  1. REBIF [Suspect]
     Active Substance: INTERFERON BETA-1A
     Indication: MULTIPLE SCLEROSIS
     Route: 058
     Dates: start: 20090401
  2. REBIF [Suspect]
     Active Substance: INTERFERON BETA-1A
     Route: 058
  3. YAZ [Concomitant]
     Active Substance: DROSPIRENONE\ETHINYL ESTRADIOL
     Indication: PRODUCT USED FOR UNKNOWN INDICATION

REACTIONS (9)
  - Hypoaesthesia [Not Recovered/Not Resolved]
  - Injection site vesicles [Unknown]
  - Fall [Unknown]
  - Lip discolouration [Unknown]
  - Injection site irritation [Unknown]
  - Back pain [Unknown]
  - Neck pain [Unknown]
  - Oral mucosal blistering [Unknown]
  - Lip blister [Unknown]

NARRATIVE: CASE EVENT DATE: 2009
